FAERS Safety Report 6718629-4 (Version None)
Quarter: 2010Q2

REPORT INFORMATION
  Report Type: 
  Country: None (occurrence: None)
  Receive Date: 20100505
  Receipt Date: 20100422
  Transmission Date: 20101027
  Serious: Yes (Hospitalization)
  Sender: FDA-Public Use
  Company Number: 167-20484-09111492

PATIENT
  Sex: Female
  Weight: 2 kg

DRUGS (11)
  1. INNOHEP [Suspect]
     Dosage: TRANSPLACENTAL
     Route: 064
  2. STEMETIL (PROCHLORPERAZINE) [Suspect]
     Dosage: TRANSPLACENTAL
     Route: 064
  3. DALTEPARIN SODIUM [Concomitant]
  4. FOLIC ACID [Concomitant]
  5. FERROUS SULFATE TAB [Concomitant]
  6. ACETAMINOPHEN [Concomitant]
  7. CODEINE PHOSPHATE (CODEINE PHSOPHATE) [Concomitant]
  8. RANITIDINE [Concomitant]
  9. BETAMETHASONE [Concomitant]
  10. DIAMORPHINE (DIAMORPHINE) [Concomitant]
  11. OXYTOCIN [Concomitant]

REACTIONS (3)
  - MATERNAL DRUGS AFFECTING FOETUS [None]
  - PREMATURE BABY [None]
  - SMALL FOR DATES BABY [None]
